FAERS Safety Report 13520483 (Version 6)
Quarter: 2017Q3

REPORT INFORMATION
  Report Type: Spontaneous
  Country: IE (occurrence: IE)
  Receive Date: 20170508
  Receipt Date: 20170912
  Transmission Date: 20171127
  Serious: Yes (Other)
  Sender: FDA-Public Use
  Company Number: IE-ABBVIE-17K-229-1963367-00

PATIENT
  Age: 33 Year
  Sex: Female

DRUGS (2)
  1. USTEKINUMAB [Suspect]
     Active Substance: USTEKINUMAB
     Indication: CROHN^S DISEASE
     Route: 065
  2. ADALIMUMAB [Suspect]
     Active Substance: ADALIMUMAB
     Indication: CROHN^S DISEASE
     Route: 058

REACTIONS (13)
  - Suicidal ideation [Unknown]
  - Vulval disorder [Recovering/Resolving]
  - Off label use [Unknown]
  - Depression [Not Recovered/Not Resolved]
  - Drug effect incomplete [Unknown]
  - Vulvovaginal pain [Recovered/Resolved]
  - Vaginal laceration [Recovering/Resolving]
  - Vaginal discharge [Recovering/Resolving]
  - Drug ineffective [Unknown]
  - Impaired quality of life [Unknown]
  - Product use issue [Unknown]
  - Lymphoedema [Unknown]
  - Cushing^s syndrome [Unknown]
